FAERS Safety Report 20405454 (Version 1)
Quarter: 2022Q1

REPORT INFORMATION
  Report Type: Spontaneous
  Country: US (occurrence: US)
  Receive Date: 20220131
  Receipt Date: 20220131
  Transmission Date: 20220423
  Serious: No
  Sender: FDA-Public Use
  Company Number: US-PFIZER INC-202101255575

PATIENT
  Age: 50 Year

DRUGS (1)
  1. PREMARIN [Suspect]
     Active Substance: ESTROGENS, CONJUGATED
     Dosage: UNK (0.5GM M+TH)

REACTIONS (3)
  - Memory impairment [Unknown]
  - Dyspnoea [Unknown]
  - Product prescribing error [Unknown]
